FAERS Safety Report 12390302 (Version 1)
Quarter: 2016Q2

REPORT INFORMATION
  Report Type: Spontaneous
  Country: JP (occurrence: JP)
  Receive Date: 20160520
  Receipt Date: 20160520
  Transmission Date: 20160815
  Serious: Yes (Death, Life-Threatening, Hospitalization)
  Sender: FDA-Public Use
  Company Number: JP-TAIHO ONCOLOGY INC-JPTT140130

PATIENT
  Age: 54 Year
  Sex: Female
  Weight: 31 kg

DRUGS (3)
  1. FERROMIA [Concomitant]
     Active Substance: FERROUS CITRATE
     Dosage: DETAILS NOT REPORTED
     Route: 048
  2. LONSURF [Suspect]
     Active Substance: TIPIRACIL HYDROCHLORIDE\TRIFLURIDINE
     Indication: RECTAL CANCER METASTATIC
     Route: 048
     Dates: start: 20140825, end: 20140829
  3. CALONAL [Concomitant]
     Active Substance: ACETAMINOPHEN
     Dosage: DETAILS NOT REPORTED
     Route: 048

REACTIONS (3)
  - Septic shock [Recovering/Resolving]
  - Small intestinal perforation [Recovered/Resolved with Sequelae]
  - Rectal cancer [Fatal]

NARRATIVE: CASE EVENT DATE: 20140829
